FAERS Safety Report 15087573 (Version 1)
Quarter: 2018Q2

REPORT INFORMATION
  Report Type: Spontaneous
  Country: US (occurrence: US)
  Receive Date: 20180629
  Receipt Date: 20180629
  Transmission Date: 20180711
  Serious: No
  Sender: FDA-Public Use
  Company Number: US-JNJFOC-20180614711

PATIENT
  Age: 2 Year
  Sex: Female
  Weight: 11.79 kg

DRUGS (2)
  1. CHILDRENS ZYRTEC [Suspect]
     Active Substance: CETIRIZINE HYDROCHLORIDE
     Indication: SEASONAL ALLERGY
     Dosage: APPROXIMATELY 4ML ONCE DAILY (Q24H) NOT EXCEEDING 2.5 ML EVERY 12 HOURS
     Route: 048
     Dates: start: 201804, end: 20180605
  2. CHILDRENS ZYRTEC [Suspect]
     Active Substance: CETIRIZINE HYDROCHLORIDE
     Indication: SEASONAL ALLERGY
     Dosage: ONCE DAILY SINCE SHE WAS 1 YEAR OLD
     Route: 048

REACTIONS (2)
  - Aggression [Recovered/Resolved]
  - Psychomotor hyperactivity [Recovered/Resolved]

NARRATIVE: CASE EVENT DATE: 201804
